FAERS Safety Report 7470853-1 (Version None)
Quarter: 2011Q2

REPORT INFORMATION
  Report Type: 
  Country: None (occurrence: None)
  Receive Date: 20110510
  Receipt Date: 20110427
  Transmission Date: 20111010
  Serious: Yes (Hospitalization)
  Sender: FDA-Public Use
  Company Number: US-CELGENEUS-163-21880-11043738

PATIENT
  Sex: Female

DRUGS (5)
  1. REVLIMID [Suspect]
     Dosage: 5 MILLIGRAM
     Route: 048
     Dates: start: 20110430
  2. REVLIMID [Suspect]
     Dosage: 5 MILLIGRAM
     Route: 048
     Dates: start: 20101020, end: 20101109
  3. ANTIBIOTICS [Concomitant]
     Route: 065
     Dates: start: 20110101, end: 20110101
  4. COUMADIN [Concomitant]
     Route: 065
     Dates: start: 20110101
  5. BLOOD TRANSFUSION [Concomitant]
     Route: 051
     Dates: start: 20110101, end: 20110101

REACTIONS (2)
  - VIRAL INFECTION [None]
  - DIPLEGIA [None]
